FAERS Safety Report 7091312-4 (Version None)
Quarter: 2010Q4

REPORT INFORMATION
  Report Type: 
  Country: None (occurrence: None)
  Receive Date: 20101109
  Receipt Date: 20101102
  Transmission Date: 20110411
  Serious: Yes (Death)
  Sender: FDA-Public Use
  Company Number: JP-BAYER-201015343BYL

PATIENT
  Age: 75 Year
  Sex: Male

DRUGS (9)
  1. NEXAVAR [Suspect]
     Indication: HEPATIC NEOPLASM MALIGNANT
     Dosage: TOTAL DAILY DOSE: 400 MG  UNIT DOSE: 200 MG
     Route: 048
     Dates: start: 20100827, end: 20100908
  2. NEXAVAR [Suspect]
     Dosage: TOTAL DAILY DOSE: 800 MG  UNIT DOSE: 200 MG
     Route: 048
     Dates: start: 20100911, end: 20101014
  3. ACTOS [Concomitant]
     Dosage: TOTAL DAILY DOSE: 15 MG
     Route: 048
  4. LANSOPRAZOLE [Concomitant]
     Route: 048
  5. LIPITOR [Concomitant]
     Route: 048
  6. BASEN [Concomitant]
     Route: 048
  7. SURGAM [Concomitant]
     Route: 048
  8. MS CONTIN [Concomitant]
     Dosage: TOTAL DAILY DOSE: 80 MG
     Route: 048
  9. OPSO [Concomitant]
     Dosage: PRN
     Route: 048

REACTIONS (1)
  - SUDDEN DEATH [None]
